FAERS Safety Report 5678304-4 (Version None)
Quarter: 2008Q1

REPORT INFORMATION
  Report Type: 
  Country: None (occurrence: None)
  Receive Date: 20080324
  Receipt Date: 20080324
  Transmission Date: 20080703
  Serious: Yes (Life-Threatening, Hospitalization, Other)
  Sender: FDA-Public Use
  Company Number: None

PATIENT
  Age: 44 Year
  Sex: Female
  Weight: 56.6996 kg

DRUGS (2)
  1. LUPRON [Suspect]
     Dosage: 3.75 07/11/204
  2. LUPRON [Suspect]
     Dosage: 3.75 08/23/204

REACTIONS (5)
  - BONE PAIN [None]
  - ECONOMIC PROBLEM [None]
  - HEADACHE [None]
  - IMPAIRED WORK ABILITY [None]
  - PERFORMANCE STATUS DECREASED [None]
